FAERS Safety Report 25873362 (Version 2)
Quarter: 2025Q4

REPORT INFORMATION
  Report Type: Report from Study
  Country: PH (occurrence: PH)
  Receive Date: 20251002
  Receipt Date: 20251225
  Transmission Date: 20260117
  Serious: Yes (Death, Hospitalization, Other)
  Sender: OTSUKA
  Company Number: PH-MMM-Otsuka-D84JFPVE

PATIENT

DRUGS (4)
  1. TOLVAPTAN [Suspect]
     Active Substance: TOLVAPTAN
     Indication: Cardiac failure
     Dosage: 0.5 DF, QD  (15 MG 1/2 TABLET ONCE A DAY)
     Route: 061
     Dates: start: 202506, end: 20251218
  2. TOLVAPTAN [Suspect]
     Active Substance: TOLVAPTAN
     Indication: Fluid retention
     Dosage: 0.5 DF, BID (15 MG 1/2 TABLET TWICE A DAY)
     Route: 061
  3. TOLVAPTAN [Suspect]
     Active Substance: TOLVAPTAN
     Indication: Blood creatinine increased
  4. TOLVAPTAN [Suspect]
     Active Substance: TOLVAPTAN
     Indication: Renal failure

REACTIONS (7)
  - Renal cyst [Fatal]
  - Pulmonary oedema [Unknown]
  - Oedema [Unknown]
  - Wrong technique in product usage process [Unknown]
  - Product use in unapproved indication [Unknown]
  - Product prescribing issue [Unknown]
  - Inappropriate schedule of product administration [Unknown]

NARRATIVE: CASE EVENT DATE: 20250601
